FAERS Safety Report 4813143-5 (Version None)
Quarter: 2005Q4

REPORT INFORMATION
  Report Type: 
  Country: None (occurrence: None)
  Receive Date: 20051028
  Receipt Date: 20050915
  Transmission Date: 20060501
  Serious: Yes (Death, Hospitalization, Other)
  Sender: FDA-Public Use
  Company Number: JP-SANOFI-SYNTHELABO-F01200501889

PATIENT
  Age: 68 Year
  Sex: Female
  Weight: 45 kg

DRUGS (5)
  1. OXALIPLATIN [Suspect]
     Indication: RECTAL CANCER
     Route: 042
     Dates: start: 20050812, end: 20050812
  2. FLUOROURACIL [Suspect]
     Dosage: 600MG/BODY =451.1MG/M2 IN BOLUS THEN 900MG/BODY=676.7MG/M2 IN CONTINUOUS INFUSION
     Route: 042
     Dates: start: 20050812, end: 20050813
  3. CALCIUM LEVOFOLINATE [Suspect]
     Route: 042
     Dates: start: 20050812, end: 20050813
  4. LENOGRASTIM [Concomitant]
     Route: 058
     Dates: start: 20050815, end: 20050815
  5. LENOGRASTIM [Concomitant]
     Route: 058
     Dates: start: 20050822, end: 20050824

REACTIONS (4)
  - HAEMOGLOBIN DECREASED [None]
  - LEUKOPENIA [None]
  - PNEUMONIA [None]
  - SEPTIC SHOCK [None]
